FAERS Safety Report 13391690 (Version 2)
Quarter: 2017Q2

REPORT INFORMATION
  Report Type: Spontaneous
  Country: US (occurrence: US)
  Receive Date: 20170331
  Receipt Date: 20170505
  Transmission Date: 20170830
  Serious: No
  Sender: FDA-Public Use
  Company Number: US-TOLMAR, INC.-TOLG20170117

PATIENT
  Age: 52 Year
  Sex: Male
  Weight: 76.4 kg

DRUGS (3)
  1. SYNTHROID [Concomitant]
     Active Substance: LEVOTHYROXINE SODIUM
     Indication: THYROID DISORDER
     Route: 065
  2. KETOCONAZOLE. [Suspect]
     Active Substance: KETOCONAZOLE
     Indication: SEBORRHOEIC DERMATITIS
     Route: 061
     Dates: start: 201612, end: 201702
  3. LEXAPRO [Concomitant]
     Active Substance: ESCITALOPRAM OXALATE
     Indication: DEPRESSION
     Dosage: LOW DOSE
     Route: 065

REACTIONS (8)
  - Application site dermatitis [Unknown]
  - Dandruff [Unknown]
  - Chemical burn of skin [Unknown]
  - Skin burning sensation [Unknown]
  - Erythema [Unknown]
  - Dermatitis contact [Unknown]
  - Skin exfoliation [Unknown]
  - Product use in unapproved indication [None]

NARRATIVE: CASE EVENT DATE: 201612
